FAERS Safety Report 15248113 (Version 1)
Quarter: 2018Q3

REPORT INFORMATION
  Report Type: Spontaneous
  Country: US (occurrence: US)
  Receive Date: 20180714
  Receipt Date: 20180714
  Transmission Date: 20181010
  Serious: Yes (Disabling)
  Sender: FDA-Public Use
  Company Number: None

PATIENT
  Age: 32 Year
  Sex: Female
  Weight: 67.5 kg

DRUGS (2)
  1. MULTIVITAMIN [Concomitant]
     Active Substance: VITAMINS
  2. LEVOFLOXACIN. [Suspect]
     Active Substance: LEVOFLOXACIN
     Indication: SINUSITIS
     Dosage: ?          QUANTITY:1 TABLET(S);?
     Route: 048
     Dates: start: 20140625, end: 20180701

REACTIONS (4)
  - Tendon rupture [None]
  - Arthralgia [None]
  - Fall [None]
  - Tenosynovitis stenosans [None]

NARRATIVE: CASE EVENT DATE: 20140626
